FAERS Safety Report 5856752-7 (Version None)
Quarter: 2008Q3

REPORT INFORMATION
  Report Type: 
  Country: None (occurrence: None)
  Receive Date: 20080825
  Receipt Date: 20080813
  Transmission Date: 20090109
  Serious: Yes (Other)
  Sender: FDA-Public Use
  Company Number: IE-PFIZER INC-2008065029

PATIENT
  Age: 33 Year
  Sex: Male
  Weight: 40 kg

DRUGS (1)
  1. DIFLUCAN [Suspect]
     Route: 042
     Dates: start: 20080721, end: 20080724

REACTIONS (2)
  - BLOOD AMYLASE INCREASED [None]
  - RASH [None]
